FAERS Safety Report 10365605 (Version 1)
Quarter: 2014Q3

REPORT INFORMATION
  Report Type: Spontaneous
  Country: US (occurrence: None)
  Receive Date: 20140804
  Receipt Date: 20140804
  Transmission Date: 20150326
  Serious: Yes (Hospitalization, Other)
  Sender: FDA-Public Use
  Company Number: 2014US00914

PATIENT

DRUGS (3)
  1. GEMCITABINE [Suspect]
     Active Substance: GEMCITABINE\GEMCITABINE HYDROCHLORIDE
     Indication: UTERINE LEIOMYOSARCOMA
     Dosage: 1,000 MG/M2 INTRAVENOUSLY ADMINISTERED ON DAYS 1 AND 8 OF 21-DAY CYCLE
     Route: 042
  2. CISPLATIN. [Suspect]
     Active Substance: CISPLATIN
     Indication: UTERINE LEIOMYOSARCOMA
  3. DOVITINIB [Suspect]
     Active Substance: DOVITINIB LACTATE
     Indication: UTERINE LEIOMYOSARCOMA
     Route: 048

REACTIONS (2)
  - Neutropenia [None]
  - Peripheral artery thrombosis [None]
